FAERS Safety Report 20158971 (Version 6)
Quarter: 2023Q2

REPORT INFORMATION
  Report Type: Other
  Country: HU (occurrence: HU)
  Receive Date: 20211208
  Receipt Date: 20230512
  Transmission Date: 20230721
  Serious: Yes (Other)
  Sender: FDA-Public Use
  Company Number: HU-CELLTRION INC.-2021HU016314

PATIENT

DRUGS (10)
  1. RITUXIMAB [Suspect]
     Active Substance: RITUXIMAB
     Indication: Product used for unknown indication
     Dosage: UNK
     Route: 065
     Dates: start: 201602
  2. IMBRUVICA [Suspect]
     Active Substance: IBRUTINIB
     Indication: Chronic lymphocytic leukaemia
     Dosage: UNK
     Route: 048
     Dates: start: 201505
  3. IMBRUVICA [Suspect]
     Active Substance: IBRUTINIB
     Dosage: UNK
     Route: 048
     Dates: start: 201505
  4. IMBRUVICA [Suspect]
     Active Substance: IBRUTINIB
     Dosage: UNK
     Route: 048
     Dates: start: 201905
  5. IMBRUVICA [Suspect]
     Active Substance: IBRUTINIB
     Dosage: UNK
     Route: 048
     Dates: start: 201905
  6. VENETOCLAX [Suspect]
     Active Substance: VENETOCLAX
     Indication: Product used for unknown indication
     Dosage: UNK
     Route: 048
     Dates: start: 202009
  7. RIFAMPIN [Concomitant]
     Active Substance: RIFAMPIN
     Indication: Bone tuberculosis
     Dosage: UNK
     Route: 065
     Dates: start: 201805
  8. SURAL [Concomitant]
     Indication: Bone tuberculosis
     Dosage: UNK
     Route: 065
     Dates: start: 202105
  9. SURAL [Concomitant]
     Dosage: UNK
     Dates: start: 201805
  10. PYRAZINAMIDE [Concomitant]
     Active Substance: PYRAZINAMIDE
     Indication: Bone tuberculosis
     Dosage: UNK
     Route: 065
     Dates: start: 201805

REACTIONS (4)
  - Squamous cell carcinoma [Unknown]
  - Ascites [Unknown]
  - Chronic lymphocytic leukaemia [Unknown]
  - Splenomegaly [Unknown]
